FAERS Safety Report 7532280-8 (Version None)
Quarter: 2011Q2

REPORT INFORMATION
  Report Type: 
  Country: None (occurrence: None)
  Receive Date: 20110608
  Receipt Date: 20110601
  Transmission Date: 20111010
  Serious: Yes (Hospitalization, Other)
  Sender: FDA-Public Use
  Company Number: US-BRISTOL-MYERS SQUIBB COMPANY-15797020

PATIENT
  Sex: Male

DRUGS (1)
  1. COUMADIN [Suspect]
     Indication: CHOLECYSTECTOMY
     Dosage: COUMADIN TABS 5 MG
     Dates: start: 20100301

REACTIONS (2)
  - GALLBLADDER DISORDER [None]
  - DIARRHOEA [None]
